FAERS Safety Report 5874489-5 (Version None)
Quarter: 2008Q3

REPORT INFORMATION
  Report Type: 
  Country: None (occurrence: None)
  Receive Date: 20080909
  Receipt Date: 20080827
  Transmission Date: 20090109
  Serious: Yes (Other)
  Sender: FDA-Public Use
  Company Number: PHHY2008DE20409

PATIENT
  Sex: Male

DRUGS (1)
  1. SANDIMMUNE [Suspect]
     Indication: LUNG TRANSPLANT
     Dosage: 300 MG/DAY
     Route: 048

REACTIONS (1)
  - CHYLOTHORAX [None]
